FAERS Safety Report 6290302-9 (Version None)
Quarter: 2009Q3

REPORT INFORMATION
  Report Type: 
  Country: None (occurrence: None)
  Receive Date: 20090730
  Receipt Date: 20090402
  Transmission Date: 20100115
  Serious: No
  Sender: FDA-Public Use
  Company Number: US-BRISTOL-MYERS SQUIBB COMPANY-14506620

PATIENT
  Age: 89 Year
  Sex: Female

DRUGS (9)
  1. COUMADIN [Suspect]
  2. DIGOXIN [Concomitant]
  3. LASIX [Concomitant]
  4. POTASSIUM CHLORIDE [Concomitant]
  5. SYNTHROID [Concomitant]
  6. PRILOSEC [Concomitant]
  7. DYRENIUM [Concomitant]
  8. FISH OIL [Concomitant]
  9. GARLIC [Concomitant]

REACTIONS (2)
  - NODULE [None]
  - ULCER [None]
